FAERS Safety Report 6652198-2 (Version None)
Quarter: 2010Q1

REPORT INFORMATION
  Report Type: 
  Country: None (occurrence: None)
  Receive Date: 20100325
  Receipt Date: 20100319
  Transmission Date: 20100710
  Serious: Yes (Life-Threatening, Hospitalization)
  Sender: FDA-Public Use
  Company Number: GB-ELI_LILLY_AND_COMPANY-GB201003005384

PATIENT
  Age: 64 Year
  Sex: Female
  Weight: 48 kg

DRUGS (8)
  1. GEMZAR [Suspect]
     Indication: NON-SMALL CELL LUNG CANCER METASTATIC
     Dosage: 1250 MG/M2, UNKNOWN
     Route: 042
     Dates: start: 20100219, end: 20100201
  2. CARBOPLATIN [Concomitant]
     Indication: NON-SMALL CELL LUNG CANCER
     Dosage: 430 MG, UNKNOWN
     Route: 065
  3. DEXAMETHASONE [Concomitant]
     Dosage: 8 MG, AS NEEDED
     Route: 042
  4. METOCLOPRAMIDE [Concomitant]
     Dosage: UNK, UNKNOWN
     Route: 042
  5. ONDANSETRON [Concomitant]
     Dosage: 8 MG, UNKNOWN
     Route: 042
     Dates: start: 20100219
  6. IBRUPROFEN [Concomitant]
     Dosage: UNK, UNKNOWN
     Route: 065
  7. ACETAMINOPHEN [Concomitant]
     Dosage: UNK, UNKNOWN
     Route: 065
  8. TRAMADOL HYDROCHLORIDE [Concomitant]
     Dosage: UNK, UNKNOWN
     Route: 065

REACTIONS (1)
  - HEPATITIS [None]
